FAERS Safety Report 15114207 (Version 3)
Quarter: 2018Q3

REPORT INFORMATION
  Report Type: Spontaneous
  Country: RO (occurrence: RO)
  Receive Date: 20180706
  Receipt Date: 20180813
  Transmission Date: 20181010
  Serious: Yes (Hospitalization, Other)
  Sender: FDA-Public Use
  Company Number: RO-PFIZER INC-2018267398

PATIENT
  Age: 43 Year
  Sex: Female

DRUGS (9)
  1. BLEOMYCIN [Suspect]
     Active Substance: BLEOMYCIN SULFATE
     Indication: HODGKIN^S DISEASE NODULAR SCLEROSIS STAGE II
     Dosage: UNK, CYCLIC (TWO CYCLES OF ABVD)
  2. VINBLASTINE [Suspect]
     Active Substance: VINBLASTINE
     Dosage: UNK, CYCLIC (TWO CYCLES OF AVD AND LOMUSTINE)
  3. DACARBAZINE. [Suspect]
     Active Substance: DACARBAZINE
     Dosage: UNK, CYCLIC (TWO CYCLES OF AVD AND LOMUSTINE)
  4. LOMUSTINE. [Suspect]
     Active Substance: LOMUSTINE
     Indication: HODGKIN^S DISEASE NODULAR SCLEROSIS STAGE II
     Dosage: UNK, CYCLIC (TWO CYCLES OF AVD AND LOMUSTINE)
  5. VINBLASTINE [Suspect]
     Active Substance: VINBLASTINE
     Indication: HODGKIN^S DISEASE NODULAR SCLEROSIS STAGE II
     Dosage: UNK, CYCLIC (TWO CYCLES OF ABVD)
  6. DOXORUBICIN HCL [Suspect]
     Active Substance: DOXORUBICIN HYDROCHLORIDE
     Indication: HODGKIN^S DISEASE NODULAR SCLEROSIS STAGE II
     Dosage: UNK, CYCLIC (TWO CYCLES OF ABVD)
  7. DOXORUBICIN HCL [Suspect]
     Active Substance: DOXORUBICIN HYDROCHLORIDE
     Dosage: UNK UNK, CYCLIC (REPORTED AS LESS THAN 300 MG/M2)
  8. DOXORUBICIN HCL [Suspect]
     Active Substance: DOXORUBICIN HYDROCHLORIDE
     Dosage: UNK, CYCLIC (TWO CYCLES OF AVD AND LOMUSTINE)
  9. DACARBAZINE. [Suspect]
     Active Substance: DACARBAZINE
     Indication: HODGKIN^S DISEASE NODULAR SCLEROSIS STAGE II
     Dosage: UNK, CYCLIC (TWO CYCLES OF ABVD)

REACTIONS (9)
  - Cardiac failure [Unknown]
  - Bifascicular block [Unknown]
  - Cardiac valve thickening [Unknown]
  - Pericardial effusion [Recovered/Resolved]
  - Pulmonary fibrosis [Unknown]
  - Pericarditis constrictive [Recovering/Resolving]
  - Electrocardiogram QT prolonged [Unknown]
  - Cardiac tamponade [Recovered/Resolved]
  - Left ventricular dysfunction [Unknown]

NARRATIVE: CASE EVENT DATE: 200204
